FAERS Safety Report 4581466-3 (Version None)
Quarter: 2005Q1

REPORT INFORMATION
  Report Type: 
  Country: None (occurrence: None)
  Receive Date: 20050214
  Receipt Date: 20041028
  Transmission Date: 20050727
  Serious: No
  Sender: FDA-Public Use
  Company Number: US-GLAXOSMITHKLINE-A0531772A

PATIENT
  Age: 40 Year
  Sex: Male

DRUGS (4)
  1. LAMICTAL [Suspect]
     Indication: BIPOLAR DISORDER
     Dosage: 25MG TWICE PER DAY
     Route: 048
  2. PAXIL [Concomitant]
  3. TRILEPTAL [Concomitant]
  4. KLONOPIN [Concomitant]

REACTIONS (1)
  - RASH [None]
